FAERS Safety Report 6927644-7 (Version None)
Quarter: 2010Q3

REPORT INFORMATION
  Report Type: 
  Country: None (occurrence: None)
  Receive Date: 20100816
  Receipt Date: 20100816
  Transmission Date: 20110219
  Serious: Yes (Other)
  Sender: FDA-Public Use
  Company Number: None

PATIENT
  Age: 27 Year
  Sex: Female

DRUGS (1)
  1. NEOSPORIN [Suspect]
     Indication: LACERATION
     Dosage: ONCE TOP
     Route: 061
     Dates: start: 20100625, end: 20100625

REACTIONS (6)
  - ABDOMINAL PAIN [None]
  - BRADYCARDIA [None]
  - MENTAL STATUS CHANGES [None]
  - PARAESTHESIA [None]
  - PRURITUS [None]
  - PULSE PRESSURE DECREASED [None]
